FAERS Safety Report 5244764-6 (Version None)
Quarter: 2007Q1

REPORT INFORMATION
  Report Type: 
  Country: None (occurrence: None)
  Receive Date: 20070216
  Receipt Date: 20070207
  Transmission Date: 20070707
  Serious: Yes (Hospitalization)
  Sender: FDA-Public Use
  Company Number: GXKR2007GB01495

PATIENT
  Age: 45 Year
  Sex: Male

DRUGS (3)
  1. DIAZEPAM [Suspect]
  2. MEFENAMIC ACID [Suspect]
  3. ALCOHOL (ETHANOL) UNKNOWN [Suspect]

REACTIONS (7)
  - CONFUSIONAL STATE [None]
  - DYSKINESIA [None]
  - GRIMACING [None]
  - MOVEMENT DISORDER [None]
  - SOMNOLENCE [None]
  - TONGUE SPASM [None]
  - TORTICOLLIS [None]
